FAERS Safety Report 24399089 (Version 2)
Quarter: 2024Q4

REPORT INFORMATION
  Report Type: Spontaneous
  Country: US (occurrence: US)
  Receive Date: 20241004
  Receipt Date: 20241108
  Transmission Date: 20250115
  Serious: No
  Sender: BRISTOL-MYERS SQUIBB COMPANY
  Company Number: US-BRISTOL-MYERS SQUIBB COMPANY-2024-156719

PATIENT
  Age: 70 Year
  Sex: Male
  Weight: 94.35 kg

DRUGS (1)
  1. REVLIMID [Suspect]
     Active Substance: LENALIDOMIDE
     Indication: Plasma cell myeloma
     Route: 048

REACTIONS (6)
  - Throat irritation [Not Recovered/Not Resolved]
  - Dry throat [Not Recovered/Not Resolved]
  - Muscle spasms [Not Recovered/Not Resolved]
  - Bone pain [Not Recovered/Not Resolved]
  - Hyperhidrosis [Recovering/Resolving]
  - Candida infection [Recovering/Resolving]
